FAERS Safety Report 9955008 (Version 1)
Quarter: 2014Q1

REPORT INFORMATION
  Report Type: Report from Study
  Country: US (occurrence: US)
  Receive Date: 20140304
  Receipt Date: 20140304
  Transmission Date: 20141002
  Serious: No
  Sender: FDA-Public Use
  Company Number: US-ABBVIE-13P-163-1075049-00

PATIENT
  Age: 53 Year
  Sex: Female

DRUGS (6)
  1. HUMIRA [Suspect]
     Indication: COLITIS ULCERATIVE
     Dates: start: 20130309, end: 20130309
  2. HUMIRA [Suspect]
     Dates: start: 20130323, end: 20130323
  3. AZACOL [Concomitant]
     Indication: COLITIS ULCERATIVE
     Dosage: 800MG 5 TABLETS DAILY
     Route: 048
  4. ROWASA ENEMA [Concomitant]
     Indication: PRODUCT USED FOR UNKNOWN INDICATION
     Dosage: NIGHTLY
  5. REMERON [Concomitant]
     Indication: INSOMNIA
     Route: 048
  6. KLONOPIN [Concomitant]
     Indication: ANXIETY
     Dosage: DAILY
     Route: 048

REACTIONS (3)
  - Haematochezia [Not Recovered/Not Resolved]
  - Abdominal pain [Not Recovered/Not Resolved]
  - Drug ineffective [Not Recovered/Not Resolved]
